FAERS Safety Report 17222520 (Version 3)
Quarter: 2020Q1

REPORT INFORMATION
  Report Type: Spontaneous
  Country: FR (occurrence: FR)
  Receive Date: 20200101
  Receipt Date: 20200226
  Transmission Date: 20200409
  Serious: Yes (Life-Threatening, Hospitalization, Other)
  Sender: FDA-Public Use
  Company Number: FR-AMGEN-FRASP2019217285

PATIENT
  Age: 59 Year
  Sex: Female
  Weight: 72 kg

DRUGS (4)
  1. FOLIC ACID. [Concomitant]
     Active Substance: FOLIC ACID
     Indication: PSORIATIC ARTHROPATHY
     Dosage: 10 MG, WEEKLY
     Route: 048
     Dates: start: 201808
  2. METOJECT [Concomitant]
     Active Substance: METHOTREXATE SODIUM
     Indication: PSORIATIC ARTHROPATHY
     Dosage: 10 MILLIGRAM, QWK
     Route: 058
     Dates: start: 201508
  3. KETOPROFEN. [Concomitant]
     Active Substance: KETOPROFEN
     Indication: PSORIATIC ARTHROPATHY
     Dosage: 10 MILLIGRAM, QWK
     Route: 048
     Dates: start: 201808
  4. ENBREL [Suspect]
     Active Substance: ETANERCEPT
     Indication: PSORIATIC ARTHROPATHY
     Dosage: 50 MILLIGRAM, QWK
     Route: 058
     Dates: start: 20160512, end: 20191130

REACTIONS (2)
  - Intraductal proliferative breast lesion [Not Recovered/Not Resolved]
  - Breast cancer recurrent [Not Recovered/Not Resolved]
